FAERS Safety Report 14928959 (Version 2)
Quarter: 2018Q3

REPORT INFORMATION
  Report Type: Spontaneous
  Country: US (occurrence: US)
  Receive Date: 20180523
  Receipt Date: 20180703
  Transmission Date: 20181010
  Serious: Yes (Hospitalization, Other)
  Sender: FDA-Public Use
  Company Number: US-SAOL THERAPEUTICS-2018SAO00755

PATIENT
  Age: 64 Year
  Sex: Female

DRUGS (19)
  1. AMLODIPINE [Concomitant]
     Active Substance: AMLODIPINE BESYLATE
     Dosage: 10 MG, 1X/DAY
  2. BUPIVACAINE. [Suspect]
     Active Substance: BUPIVACAINE
     Dosage: 275.03 ?G, \DAY
     Route: 037
  3. DILAUDID [Suspect]
     Active Substance: HYDROMORPHONE HYDROCHLORIDE
     Dosage: 0.06 MG, \DAY, MINIMUM RATE
     Route: 037
     Dates: start: 20180511
  4. LEVOTHYROXINE. [Concomitant]
     Active Substance: LEVOTHYROXINE
     Dosage: 25 ?G, 1X/DAY
  5. METROPROLOL [Concomitant]
     Active Substance: METOPROLOL
     Dosage: 25 MG, 2X/DAY
  6. DILAUDID [Suspect]
     Active Substance: HYDROMORPHONE HYDROCHLORIDE
     Dosage: 4.227 MG, \DAY
     Route: 037
     Dates: start: 20180510, end: 20180511
  7. PERCOCET [Concomitant]
     Active Substance: ACETAMINOPHEN\OXYCODONE HYDROCHLORIDE
     Dosage: UNK, 8X/DAY PRN FOR PAIN
  8. COMPOUNDED BACLOFEN [Suspect]
     Active Substance: BACLOFEN
     Indication: MUSCLE SPASTICITY
     Dosage: 42.31 ?G, \DAY
     Route: 037
  9. COMPOUNDED BACLOFEN [Suspect]
     Active Substance: BACLOFEN
     Dosage: 42.27 ?G, \DAY
     Route: 037
     Dates: start: 20180510, end: 20180511
  10. ATORVASTATIN [Concomitant]
     Active Substance: ATORVASTATIN
     Dosage: 20 MG, 1X/DAY
  11. LANTUS [Concomitant]
     Active Substance: INSULIN GLARGINE
     Dosage: 60 U, 1X/DAY
  12. TRAZODONE [Concomitant]
     Active Substance: TRAZODONE HYDROCHLORIDE
     Dosage: 100 MG, 1X/DAY
  13. COMPOUNDED BACLOFEN [Suspect]
     Active Substance: BACLOFEN
     Dosage: 0.6 ?G, \DAY, MINIMUM RATE
     Route: 037
     Dates: start: 20180511
  14. BUPIVACAINE. [Suspect]
     Active Substance: BUPIVACAINE
     Dosage: 274.76 ?G, \DAY
     Route: 037
     Dates: start: 20180510, end: 20180511
  15. QUETIAPINE. [Concomitant]
     Active Substance: QUETIAPINE
     Dosage: 50 MG, 1X/DAY
  16. LASIX [Concomitant]
     Active Substance: FUROSEMIDE
     Dosage: 40 MG, 1X/DAY
  17. BUPIVACAINE. [Suspect]
     Active Substance: BUPIVACAINE
     Dosage: 3.9 MG, \DAY, MINIMUM RATE
     Route: 037
     Dates: start: 20180511
  18. DILAUDID [Suspect]
     Active Substance: HYDROMORPHONE HYDROCHLORIDE
     Dosage: 4.231 MG, \DAY
     Route: 037
  19. BENAZEPRIL [Concomitant]
     Active Substance: BENAZEPRIL HYDROCHLORIDE
     Dosage: 40 MG, 1X/DAY

REACTIONS (15)
  - Haemoconcentration [Unknown]
  - Blood pressure increased [Unknown]
  - Hepatitis [Recovering/Resolving]
  - Hypokalaemia [Unknown]
  - Drug withdrawal syndrome [Recovering/Resolving]
  - Confusional state [Unknown]
  - Lethargy [Recovered/Resolved]
  - Hypoglycaemia [Recovering/Resolving]
  - Dehydration [Unknown]
  - Functional gastrointestinal disorder [Unknown]
  - Accidental overdose [Recovered/Resolved]
  - Acute respiratory failure [Recovered/Resolved]
  - Atelectasis [Unknown]
  - Encephalopathy [Recovered/Resolved]
  - Sinusitis [Unknown]

NARRATIVE: CASE EVENT DATE: 20180511
